FAERS Safety Report 21584722 (Version 3)
Quarter: 2023Q1

REPORT INFORMATION
  Report Type: Report from Study
  Country: US (occurrence: US)
  Receive Date: 20221111
  Receipt Date: 20230104
  Transmission Date: 20230418
  Serious: Yes (Hospitalization)
  Sender: FDA-Public Use
  Company Number: US-ABBVIE-4195996

PATIENT
  Age: 50 Year
  Sex: Female

DRUGS (5)
  1. HUMIRA [Suspect]
     Active Substance: ADALIMUMAB
     Indication: Colitis ulcerative
     Dosage: DOSE INCREASED.??FORM STRENGTH: 40 MG
     Route: 058
     Dates: start: 201801
  2. HUMIRA [Suspect]
     Active Substance: ADALIMUMAB
     Indication: Hidradenitis
     Dosage: FORM STRENGTH: 40 MG
     Route: 058
  3. HUMIRA [Suspect]
     Active Substance: ADALIMUMAB
     Indication: Hidradenitis
  4. MODERNA COVID-19 VACCINE [Concomitant]
     Active Substance: ELASOMERAN
     Indication: COVID-19 immunisation
     Dosage: ONCE
     Route: 030
  5. MODERNA COVID-19 VACCINE [Concomitant]
     Active Substance: ELASOMERAN
     Indication: COVID-19 immunisation
     Dosage: BOOSTER DOSE, ONCE
     Route: 030

REACTIONS (5)
  - Condition aggravated [Recovering/Resolving]
  - Nausea [Unknown]
  - Arthropod bite [Unknown]
  - Malaise [Unknown]
  - Unevaluable event [Unknown]

NARRATIVE: CASE EVENT DATE: 20221001
